FAERS Safety Report 11658214 (Version 3)
Quarter: 2016Q1

REPORT INFORMATION
  Report Type: Spontaneous
  Country: TR (occurrence: TR)
  Receive Date: 20151025
  Receipt Date: 20160204
  Transmission Date: 20160525
  Serious: Yes (Hospitalization, Other)
  Sender: FDA-Public Use
  Company Number: TR-TEVA-602462ISR

PATIENT
  Age: 33 Year
  Sex: Male

DRUGS (4)
  1. CARBAMAZEPINE. [Concomitant]
     Active Substance: CARBAMAZEPINE
     Indication: EPILEPSY
     Dosage: 600 MILLIGRAM DAILY;
     Route: 065
  2. CARBAMAZEPINE. [Concomitant]
     Active Substance: CARBAMAZEPINE
     Dosage: 1000 MILLIGRAM DAILY;
     Route: 065
  3. CARBAMAZEPINE. [Concomitant]
     Active Substance: CARBAMAZEPINE
     Dosage: 400 MILLIGRAM DAILY;
  4. GABAPENTIN. [Suspect]
     Active Substance: GABAPENTIN
     Indication: COMPLEX PARTIAL SEIZURES
     Dosage: 2400 MILLIGRAM DAILY;
     Route: 065

REACTIONS (7)
  - Hepatosplenomegaly [Unknown]
  - Pyrexia [Unknown]
  - Abscess [Unknown]
  - Disseminated tuberculosis [Unknown]
  - Thrombocytopenia [Recovering/Resolving]
  - Pancytopenia [Unknown]
  - Gingival bleeding [Unknown]
